FAERS Safety Report 7814744-2 (Version None)
Quarter: 2011Q4

REPORT INFORMATION
  Report Type: 
  Country: None (occurrence: None)
  Receive Date: 20111013
  Receipt Date: 20111013
  Transmission Date: 20120403
  Serious: Yes (Other)
  Sender: FDA-Public Use
  Company Number: None

PATIENT
  Sex: Male
  Weight: 91.6266 kg

DRUGS (2)
  1. TAMSULOSIN HCL [Suspect]
     Dosage: ON 0.4 MG HS PO
     Route: 048
     Dates: start: 20100101
  2. TAMSULOSIN HCL [Suspect]
     Dosage: ONE 0.4 MG HS PO
     Route: 048
     Dates: start: 20110101

REACTIONS (4)
  - RHINITIS [None]
  - NAUSEA [None]
  - CHEST PAIN [None]
  - INSOMNIA [None]
